FAERS Safety Report 7842355 (Version 2)
Quarter: 2013Q2

REPORT INFORMATION
  Report Type: Spontaneous
  Country: IE (occurrence: IE)
  Receive Date: 20110304
  Receipt Date: 20130423
  Transmission Date: 20140414
  Serious: Yes (Hospitalization, Other)
  Sender: FDA-Public Use
  Company Number: IE-BAYER-2011-015788

PATIENT
  Age: 66 Year
  Sex: Male

DRUGS (8)
  1. XARELTO [Suspect]
     Indication: THROMBOSIS PROPHYLAXIS
     Dosage: 10 MG, QD
     Route: 048
     Dates: start: 20110118, end: 20110124
  2. ACETYLSALICYLIC ACID({=100 MG) [Interacting]
     Indication: CARDIOVASCULAR DISORDER
     Dosage: 75 MG, QD
     Route: 048
     Dates: end: 20110124
  3. OLMESARTAN [Concomitant]
     Indication: HYPERTENSION
     Dosage: 20 MG, QD
  4. CARDICOR [Concomitant]
     Indication: HYPERTENSION
     Dosage: 2.5 MG, QD
  5. LIPITOR [Concomitant]
     Indication: DYSLIPIDAEMIA
     Dosage: 10 MG, QD
  6. DICLOFENAC [Interacting]
     Indication: PAIN
     Dosage: 50 MG, TID
     Route: 048
     Dates: start: 20110118, end: 20110124
  7. CELEBREX [Interacting]
     Indication: PAIN
     Dosage: 200 MG, TID
     Route: 048
     Dates: start: 20101102, end: 20110124
  8. ENOXAPARIN [Concomitant]
     Dosage: 40 MG, QD
     Dates: start: 20110114, end: 20110118

REACTIONS (7)
  - Acute myocardial infarction [Not Recovered/Not Resolved]
  - Pulmonary oedema [Not Recovered/Not Resolved]
  - Gastrointestinal haemorrhage [Not Recovered/Not Resolved]
  - Syncope [Not Recovered/Not Resolved]
  - Dizziness [Not Recovered/Not Resolved]
  - Dyspnoea [Not Recovered/Not Resolved]
  - Melaena [Not Recovered/Not Resolved]
